APPROVED DRUG PRODUCT: FLUPHENAZINE DECANOATE
Active Ingredient: FLUPHENAZINE DECANOATE
Strength: 25MG/ML
Dosage Form/Route: INJECTABLE;INJECTION
Application: A207739 | Product #001 | TE Code: AO
Applicant: EUGIA PHARMA SPECIALITIES LTD
Approved: Oct 17, 2017 | RLD: No | RS: No | Type: RX